FAERS Safety Report 20191398 (Version 1)
Quarter: 2021Q4

REPORT INFORMATION
  Report Type: Spontaneous
  Country: IT (occurrence: IT)
  Receive Date: 20211216
  Receipt Date: 20211216
  Transmission Date: 20220304
  Serious: Yes (Life-Threatening, Hospitalization)
  Sender: FDA-Public Use
  Company Number: IT-LUPIN PHARMACEUTICALS INC.-2021-22878

PATIENT
  Age: 23 Year
  Sex: Male

DRUGS (14)
  1. LEVETIRACETAM [Suspect]
     Active Substance: LEVETIRACETAM
     Indication: Status epilepticus
     Dosage: 2000 MG
     Route: 042
  2. LEVETIRACETAM [Suspect]
     Active Substance: LEVETIRACETAM
     Indication: Post-traumatic epilepsy
     Dosage: 3000 MG, QD
     Route: 042
  3. METHYLPREDNISOLONE [Suspect]
     Active Substance: METHYLPREDNISOLONE
     Indication: Post-traumatic epilepsy
     Dosage: UNK
     Route: 042
  4. METHYLPREDNISOLONE [Suspect]
     Active Substance: METHYLPREDNISOLONE
     Indication: Status epilepticus
  5. LACOSAMIDE [Suspect]
     Active Substance: LACOSAMIDE
     Indication: Post-traumatic epilepsy
     Dosage: UNK
     Route: 065
  6. LACOSAMIDE [Suspect]
     Active Substance: LACOSAMIDE
     Indication: Status epilepticus
  7. PHENYTOIN SODIUM [Suspect]
     Active Substance: PHENYTOIN SODIUM
     Indication: Post-traumatic epilepsy
     Dosage: UNK
     Route: 065
  8. PHENYTOIN SODIUM [Suspect]
     Active Substance: PHENYTOIN SODIUM
     Indication: Status epilepticus
  9. VALPROIC ACID [Suspect]
     Active Substance: VALPROIC ACID
     Indication: Status epilepticus
     Dosage: UNK (LOADING DOSE)
     Route: 065
  10. VALPROIC ACID [Suspect]
     Active Substance: VALPROIC ACID
     Indication: Post-traumatic epilepsy
     Dosage: 2 MILLIGRAM PER KILOGRAM PER HOUR (MAINTAINANCE DOSE)
     Route: 065
  11. PROPOFOL [Concomitant]
     Active Substance: PROPOFOL
     Indication: Sedation
     Dosage: UNK (WEANED OFF)
     Route: 042
  12. PROPOFOL [Concomitant]
     Active Substance: PROPOFOL
     Indication: Status epilepticus
  13. MIDAZOLAM [Concomitant]
     Active Substance: MIDAZOLAM
     Indication: Status epilepticus
     Dosage: UNK
     Route: 065
  14. MIDAZOLAM [Concomitant]
     Active Substance: MIDAZOLAM
     Indication: Post-traumatic epilepsy

REACTIONS (1)
  - Drug ineffective [Unknown]
